FAERS Safety Report 8476977 (Version 3)
Quarter: 2012Q4

REPORT INFORMATION
  Report Type: Report from Study
  Country: DE (occurrence: DE)
  Receive Date: 20120326
  Receipt Date: 20120925
  Transmission Date: 20130627
  Serious: Yes (Hospitalization)
  Sender: FDA-Public Use
  Company Number: PHHO2012DE004672

PATIENT
  Age: 41 Year
  Sex: Male
  Weight: 86 kg

DRUGS (4)
  1. BLINDED AFINITOR [Suspect]
     Indication: TUBEROUS SCLEROSIS
     Dosage: code not broken
     Route: 048
     Dates: start: 20090909
  2. BLINDED NO TREATMENT RECEIVED [Suspect]
     Indication: TUBEROUS SCLEROSIS
     Dosage: code not broken
     Route: 048
     Dates: start: 20090909
  3. BLINDED PLACEBO [Suspect]
     Indication: TUBEROUS SCLEROSIS
     Dosage: code not broken
     Route: 048
     Dates: start: 20090909
  4. DOXYLAMINE SUCCINATE [Concomitant]
     Indication: SLEEP DISORDER
     Dosage: 25 mg, QD
     Dates: start: 20120207, end: 20120318

REACTIONS (2)
  - Blood alcohol increased [Recovered/Resolved]
  - Mental disability [Recovered/Resolved]
